FAERS Safety Report 21823161 (Version 1)
Quarter: 2023Q1

REPORT INFORMATION
  Report Type: Spontaneous
  Country: IT (occurrence: IT)
  Receive Date: 20230105
  Receipt Date: 20230105
  Transmission Date: 20230417
  Serious: Yes (Other)
  Sender: FDA-Public Use
  Company Number: IT-SA-SAC20221229000620

PATIENT
  Age: 43 Year
  Sex: Female

DRUGS (1)
  1. LEVOFLOXACIN [Suspect]
     Active Substance: LEVOFLOXACIN
     Indication: Sinusitis
     Dosage: 500 MG, UNKNOWN
     Route: 048
     Dates: start: 20221117, end: 20221117

REACTIONS (2)
  - Palatal oedema [Recovering/Resolving]
  - Eyelid oedema [Recovering/Resolving]
